FAERS Safety Report 12115509 (Version 1)
Quarter: 2016Q1

REPORT INFORMATION
  Report Type: Spontaneous
  Country: US (occurrence: US)
  Receive Date: 20160225
  Receipt Date: 20160225
  Transmission Date: 20160526
  Serious: Yes (Other)
  Sender: FDA-Public Use
  Company Number: US-PFIZER INC-2016109451

PATIENT
  Sex: Male

DRUGS (1)
  1. ZOLOFT [Suspect]
     Active Substance: SERTRALINE HYDROCHLORIDE
     Indication: PANIC ATTACK
     Dosage: UNK

REACTIONS (8)
  - Tremor [Unknown]
  - Activities of daily living impaired [Unknown]
  - Dry mouth [Unknown]
  - Alopecia [Unknown]
  - Muscle twitching [Unknown]
  - Pruritus [Unknown]
  - Confusional state [Unknown]
  - Weight decreased [Unknown]
